FAERS Safety Report 14188787 (Version 5)
Quarter: 2019Q2

REPORT INFORMATION
  Report Type: Spontaneous
  Country: IT (occurrence: IT)
  Receive Date: 20171114
  Receipt Date: 20190416
  Transmission Date: 20190711
  Serious: Yes (Hospitalization, Other)
  Sender: FDA-Public Use
  Company Number: IT-KADMON PHARMACEUTICALS, LLC-KAD201711-001217

PATIENT
  Age: 45 Year
  Sex: Male

DRUGS (35)
  1. SOVALDI [Suspect]
     Active Substance: SOFOSBUVIR
     Indication: CHRONIC HEPATITIS C
     Dosage: 400 MG
     Route: 048
     Dates: start: 2015
  2. REYATAZ [Suspect]
     Active Substance: ATAZANAVIR SULFATE
     Indication: ACQUIRED IMMUNODEFICIENCY SYNDROME
  3. DIBASE [Concomitant]
     Active Substance: CHOLECALCIFEROL
  4. GAVISCON ADVANCE [Concomitant]
     Active Substance: POTASSIUM BICARBONATE\SODIUM ALGINATE
  5. RIBAVIRIN. [Suspect]
     Active Substance: RIBAVIRIN
     Dosage: 1200 MG (DOSE REDUCED)
  6. SOVALDI [Suspect]
     Active Substance: SOFOSBUVIR
     Indication: HEPATITIS C
     Dosage: 400 MG BOTTLE, (HDPE), 28 TABLETS
     Route: 048
     Dates: start: 20150603, end: 20151111
  7. LAEVOLAC EPS [Concomitant]
  8. ABACAVIR/LAMIVUDIN [Concomitant]
     Active Substance: ABACAVIR\LAMIVUDINE
  9. RIBAVIRIN. [Suspect]
     Active Substance: RIBAVIRIN
     Indication: CHRONIC HEPATITIS C
     Dosage: 1000 MG
     Dates: start: 20150603, end: 20150827
  10. SOVALDI [Suspect]
     Active Substance: SOFOSBUVIR
     Indication: HIV INFECTION
     Dosage: 60 MG
  11. KIVEXA [Suspect]
     Active Substance: ABACAVIR SULFATE\LAMIVUDINE
     Indication: CHRONIC HEPATITIS C
     Dosage: 30X300+600 MG TABLETS IN PVC/PVDC/AL BLISTER PACK
     Dates: start: 20120621
  12. TALOFEN [Concomitant]
     Active Substance: PROMAZINE HYDROCHLORIDE
     Route: 048
  13. NORVIR [Concomitant]
     Active Substance: RITONAVIR
     Dates: start: 20090707, end: 20150722
  14. SOFOSBUVIR [Concomitant]
     Active Substance: SOFOSBUVIR
  15. DAKLINZA [Suspect]
     Active Substance: DACLATASVIR
     Indication: HEPATITIS C
     Dosage: BLISTER PACK (PVC/PCTFE/AL) - 28 TABLETS
  16. RIBAVIRIN. [Suspect]
     Active Substance: RIBAVIRIN
     Dosage: 1000 MG
     Dates: start: 2015
  17. ABACAVIR. [Suspect]
     Active Substance: ABACAVIR
     Indication: CHRONIC HEPATITIS C
  18. KIVEXA [Suspect]
     Active Substance: ABACAVIR SULFATE\LAMIVUDINE
     Indication: HIV INFECTION
     Dosage: 1 DOSAGE FORM
     Route: 048
  19. METADONE CLORIDRATO [Concomitant]
     Active Substance: METHADONE HYDROCHLORIDE
  20. LAMIVUDINE. [Concomitant]
     Active Substance: LAMIVUDINE
  21. RIBAVIRIN. [Suspect]
     Active Substance: RIBAVIRIN
     Indication: HEPATITIS C
     Dosage: 1200 MG
     Dates: start: 20150603, end: 20150827
  22. DAKLINZA [Suspect]
     Active Substance: DACLATASVIR
     Indication: CHRONIC HEPATITIS C
     Dosage: 30 MG
     Dates: start: 20150603, end: 20150722
  23. KIVEXA [Suspect]
     Active Substance: ABACAVIR SULFATE\LAMIVUDINE
     Dosage: UNKNOWN
  24. PERIDON [Concomitant]
     Active Substance: DOMPERIDONE
  25. RIBAVIRIN. [Suspect]
     Active Substance: RIBAVIRIN
     Dosage: 1000 MG
  26. RIBAVIRIN. [Suspect]
     Active Substance: RIBAVIRIN
     Dosage: 200 MG (42 TABLETS IN A BOTTLE)
     Route: 048
     Dates: start: 20150603, end: 20151111
  27. DAKLINZA [Suspect]
     Active Substance: DACLATASVIR
     Indication: HIV INFECTION
     Dosage: 60 MG
  28. REYATAZ [Suspect]
     Active Substance: ATAZANAVIR SULFATE
     Indication: HIV INFECTION
     Dosage: 300 MG
     Route: 048
     Dates: start: 20091007, end: 20150722
  29. REYATAZ [Suspect]
     Active Substance: ATAZANAVIR SULFATE
     Indication: CHRONIC HEPATITIS C
     Dosage: MG BOTTLE (HIGH DENSITY POLYETHYLENE) 30 CAPSULES
  30. RITONAVIR. [Suspect]
     Active Substance: RITONAVIR
     Indication: HIV INFECTION
  31. ABACAVIR. [Suspect]
     Active Substance: ABACAVIR
     Indication: HIV INFECTION
     Dosage: 1 DOSAGE FORM
     Route: 048
  32. RALTEGRAVIR. [Concomitant]
     Active Substance: RALTEGRAVIR
  33. RIBAVIRIN. [Suspect]
     Active Substance: RIBAVIRIN
     Indication: HIV INFECTION
     Dosage: 600 MG
  34. TRUVADA [Suspect]
     Active Substance: EMTRICITABINE\TENOFOVIR DISOPROXIL FUMARATE
     Indication: HIV INFECTION
     Route: 048
     Dates: start: 20091007, end: 20120621
  35. NEORECORMON [Concomitant]
     Active Substance: ERYTHROPOIETIN

REACTIONS (4)
  - Hyperbilirubinaemia [Recovered/Resolved]
  - Anaemia [Recovered/Resolved]
  - Biliary colic [Unknown]
  - Drug interaction [Recovered/Resolved]

NARRATIVE: CASE EVENT DATE: 20150722
